FAERS Safety Report 22216513 (Version 2)
Quarter: 2023Q2

REPORT INFORMATION
  Report Type: Report from Study
  Country: US (occurrence: US)
  Receive Date: 20230417
  Receipt Date: 20230531
  Transmission Date: 20230722
  Serious: Yes (Hospitalization, Other)
  Sender: FDA-Public Use
  Company Number: US-ABBVIE-4728683

PATIENT
  Age: 75 Year
  Sex: Female
  Weight: 64.41 kg

DRUGS (3)
  1. HUMIRA [Suspect]
     Active Substance: ADALIMUMAB
     Indication: Psoriatic arthropathy
     Dosage: 40MG/0.8ML
     Route: 058
     Dates: start: 20230327, end: 2023
  2. HUMIRA [Suspect]
     Active Substance: ADALIMUMAB
     Indication: Psoriasis
     Dosage: 40MG/0.8ML
     Route: 058
     Dates: start: 20131125, end: 20230227
  3. Glimepiride (Glipiride) [Concomitant]
     Indication: Diabetes mellitus

REACTIONS (3)
  - Knee arthroplasty [Recovering/Resolving]
  - Procedural pain [Unknown]
  - Constipation [Recovered/Resolved]

NARRATIVE: CASE EVENT DATE: 20230314
